FAERS Safety Report 14435045 (Version 1)
Quarter: 2018Q1

REPORT INFORMATION
  Report Type: Spontaneous
  Country: CA (occurrence: CA)
  Receive Date: 20180125
  Receipt Date: 20180125
  Transmission Date: 20180509
  Serious: Yes (Other)
  Sender: FDA-Public Use
  Company Number: CA-ROCHE-2048677

PATIENT
  Sex: Female

DRUGS (3)
  1. ORENCIA [Suspect]
     Active Substance: ABATACEPT
     Indication: PRODUCT USED FOR UNKNOWN INDICATION
     Dosage: TYPE 2 FAILURE
     Route: 058
     Dates: start: 201611, end: 201706
  2. ACTEMRA [Suspect]
     Active Substance: TOCILIZUMAB
     Indication: RHEUMATOID ARTHRITIS
     Route: 058
     Dates: end: 20171026
  3. ENBREL [Suspect]
     Active Substance: ETANERCEPT
     Indication: RHEUMATOID ARTHRITIS
     Dosage: TYPE 1 FAILURE
     Route: 065
     Dates: start: 201606, end: 201610

REACTIONS (5)
  - Inflammation [Unknown]
  - Joint swelling [Unknown]
  - Arthralgia [Unknown]
  - Treatment failure [Unknown]
  - Drug ineffective [Unknown]
